FAERS Safety Report 19602292 (Version 1)
Quarter: 2021Q3

REPORT INFORMATION
  Report Type: Spontaneous
  Country: FR (occurrence: FR)
  Receive Date: 20210723
  Receipt Date: 20210723
  Transmission Date: 20211014
  Serious: Yes (Life-Threatening)
  Sender: FDA-Public Use
  Company Number: FR-TEVA-2021-FR-1933304

PATIENT
  Age: 77 Year
  Sex: Male

DRUGS (2)
  1. CLOZAPINE. [Suspect]
     Active Substance: CLOZAPINE
     Dosage: 400MG
     Route: 048
     Dates: start: 20200921, end: 20200921
  2. HALOPERIDOL. [Suspect]
     Active Substance: HALOPERIDOL
     Dosage: 3MG
     Route: 048
     Dates: start: 20200921, end: 20200921

REACTIONS (2)
  - Coma [Recovered/Resolved with Sequelae]
  - Wrong patient received product [Unknown]

NARRATIVE: CASE EVENT DATE: 20200921
